FAERS Safety Report 21095270 (Version 1)
Quarter: 2022Q3

REPORT INFORMATION
  Report Type: Spontaneous
  Country: US (occurrence: US)
  Receive Date: 20220718
  Receipt Date: 20220718
  Transmission Date: 20221026
  Serious: No
  Sender: FDA-Public Use
  Company Number: US-PFIZER INC-202200963332

PATIENT
  Age: 53 Year
  Sex: Female

DRUGS (1)
  1. IBRANCE [Suspect]
     Active Substance: PALBOCICLIB
     Dosage: 125 MG, CYCLIC (TAKE 1 TABLET DAILY. TAKE FOR 3 WEEKS ON, 1 WEEK OFF)
     Dates: start: 20220702

REACTIONS (9)
  - Product dose omission issue [Not Recovered/Not Resolved]
  - Decreased appetite [Not Recovered/Not Resolved]
  - Dehydration [Not Recovered/Not Resolved]
  - Weight decreased [Not Recovered/Not Resolved]
  - Bone pain [Recovering/Resolving]
  - Neuralgia [Not Recovered/Not Resolved]
  - Muscle spasms [Not Recovered/Not Resolved]
  - Malaise [Unknown]
  - Arthralgia [Recovering/Resolving]

NARRATIVE: CASE EVENT DATE: 20220701
